FAERS Safety Report 24409672 (Version 1)
Quarter: 2024Q4

REPORT INFORMATION
  Report Type: Spontaneous
  Country: JP (occurrence: JP)
  Receive Date: 20241008
  Receipt Date: 20241008
  Transmission Date: 20250114
  Serious: Yes (Other)
  Sender: GLAXOSMITHKLINE
  Company Number: JP-GSKNCCC-Case-02081959_AE-88562

PATIENT

DRUGS (1)
  1. AMERGE [Suspect]
     Active Substance: NARATRIPTAN HYDROCHLORIDE
     Indication: Headache
     Dosage: UNK, 3 TO 5 TABS PER MONTH

REACTIONS (10)
  - Arrhythmia [Unknown]
  - Transient ischaemic attack [Unknown]
  - Systemic scleroderma [Unknown]
  - Loss of consciousness [Unknown]
  - Skin discolouration [Unknown]
  - Palpitations [Unknown]
  - Headache [Unknown]
  - Raynaud^s phenomenon [Unknown]
  - Capillary disorder [Unknown]
  - Contraindicated product administered [Unknown]
